FAERS Safety Report 4869807-0 (Version None)
Quarter: 2005Q4

REPORT INFORMATION
  Report Type: 
  Country: None (occurrence: None)
  Receive Date: 20051223
  Receipt Date: 20051219
  Transmission Date: 20060501
  Serious: Yes (Other)
  Sender: FDA-Public Use
  Company Number: S05-USA-05241-01

PATIENT
  Age: 19 Year
  Sex: Female

DRUGS (4)
  1. LEXAPRO [Suspect]
     Indication: SOCIAL PHOBIA
     Dosage: 20  MG QD PO
     Route: 048
     Dates: start: 20040101, end: 20040101
  2. LEXAPRO [Suspect]
     Indication: SOCIAL PHOBIA
     Dosage: 10 MG QD PO
     Route: 048
     Dates: start: 20040101, end: 20040101
  3. ALCOHOL [Concomitant]
  4. MARIJUANA [Concomitant]

REACTIONS (2)
  - DRUG ABUSER [None]
  - LOSS OF CONSCIOUSNESS [None]
